FAERS Safety Report 16669096 (Version 3)
Quarter: 2019Q3

REPORT INFORMATION
  Report Type: Spontaneous
  Country: US (occurrence: US)
  Receive Date: 20190805
  Receipt Date: 20190826
  Transmission Date: 20191004
  Serious: No
  Sender: FDA-Public Use
  Company Number: US-HORIZON-VIM-0300-2019

PATIENT
  Age: 58 Year
  Sex: Female

DRUGS (2)
  1. TRAMADOL. [Concomitant]
     Active Substance: TRAMADOL
  2. VIMOVO [Suspect]
     Active Substance: ESOMEPRAZOLE MAGNESIUM\NAPROXEN
     Indication: CONNECTIVE TISSUE DISORDER
     Dosage: 1 TAB BID WITH FOOD
     Route: 048
     Dates: start: 20190723

REACTIONS (5)
  - Feeling abnormal [Unknown]
  - Ear infection [Unknown]
  - Off label use [Unknown]
  - Product administration error [Unknown]
  - Dizziness [Unknown]

NARRATIVE: CASE EVENT DATE: 201907
